FAERS Safety Report 15273843 (Version 4)
Quarter: 2018Q3

REPORT INFORMATION
  Report Type: Spontaneous
  Country: US (occurrence: US)
  Receive Date: 20180813
  Receipt Date: 20180830
  Transmission Date: 20181010
  Serious: Yes (Other)
  Sender: FDA-Public Use
  Company Number: US-AMGEN-USASP2018108474

PATIENT
  Age: 19 Year
  Sex: Female

DRUGS (2)
  1. ENBREL [Suspect]
     Active Substance: ETANERCEPT
     Indication: PRODUCT USED FOR UNKNOWN INDICATION
     Dosage: 50 MG, QWK
     Route: 065
  2. COLCHICINE. [Concomitant]
     Active Substance: COLCHICINE
     Dosage: UNK

REACTIONS (2)
  - Ill-defined disorder [Unknown]
  - Pilonidal cyst [Recovering/Resolving]
